FAERS Safety Report 19469911 (Version 7)
Quarter: 2021Q3

REPORT INFORMATION
  Report Type: Spontaneous
  Country: BR (occurrence: BR)
  Receive Date: 20210628
  Receipt Date: 20210925
  Transmission Date: 20211014
  Serious: Yes (Life-Threatening, Other)
  Sender: FDA-Public Use
  Company Number: NVSC2021BR121637

PATIENT
  Age: 77 Year
  Sex: Female
  Weight: 52 kg

DRUGS (1)
  1. DIOVAN [Suspect]
     Active Substance: VALSARTAN
     Indication: HYPERTENSION
     Dosage: UNK UNK, QD
     Route: 048

REACTIONS (12)
  - Blood pressure inadequately controlled [Not Recovered/Not Resolved]
  - Product blister packaging issue [Unknown]
  - Pain [Not Recovered/Not Resolved]
  - Overdose [Unknown]
  - Osteoarthritis [Not Recovered/Not Resolved]
  - Headache [Not Recovered/Not Resolved]
  - Tympanic membrane perforation [Unknown]
  - General physical health deterioration [Unknown]
  - Feeling abnormal [Unknown]
  - Vomiting [Not Recovered/Not Resolved]
  - Blood pressure increased [Not Recovered/Not Resolved]
  - Arrhythmia [Not Recovered/Not Resolved]
